FAERS Safety Report 6386088-X (Version None)
Quarter: 2009Q4

REPORT INFORMATION
  Report Type: 
  Country: None (occurrence: None)
  Receive Date: 20091002
  Receipt Date: 20081204
  Transmission Date: 20100525
  Serious: No
  Sender: FDA-Public Use
  Company Number: US-ASTRAZENECA-2008UW27181

PATIENT
  Sex: Female

DRUGS (6)
  1. ARIMIDEX [Suspect]
     Indication: BREAST CANCER
     Dosage: UNKNOWN
     Route: 048
     Dates: start: 20060701
  2. COMBIVENT [Concomitant]
  3. ALBUTEROL [Concomitant]
  4. ADVAIR DISKUS 100/50 [Concomitant]
  5. UNSPECIFIED [Concomitant]
     Indication: HYPERTENSION
  6. OXYGEN [Concomitant]
     Dosage: 24 HOURS

REACTIONS (11)
  - ALCOHOL USE [None]
  - BLADDER DISORDER [None]
  - DEPRESSION [None]
  - EYE DISORDER [None]
  - HYPERHIDROSIS [None]
  - HYPERTENSION [None]
  - MOOD SWINGS [None]
  - NAUSEA [None]
  - OEDEMA PERIPHERAL [None]
  - PAIN [None]
  - SKIN DISORDER [None]
